FAERS Safety Report 12728975 (Version 1)
Quarter: 2016Q3

REPORT INFORMATION
  Report Type: Spontaneous
  Country: CH (occurrence: CH)
  Receive Date: 20160909
  Receipt Date: 20160909
  Transmission Date: 20161109
  Serious: Yes (Other)
  Sender: FDA-Public Use
  Company Number: CH-ELI_LILLY_AND_COMPANY-CH201609001157

PATIENT
  Sex: Female

DRUGS (4)
  1. CRESTOR [Concomitant]
     Active Substance: ROSUVASTATIN CALCIUM
     Dosage: UNK, UNKNOWN
     Route: 065
  2. CYMBALTA [Suspect]
     Active Substance: DULOXETINE HYDROCHLORIDE
     Indication: DEPRESSION
     Dosage: 30 MG, UNKNOWN
     Route: 048
  3. TEBOKAN [Concomitant]
     Active Substance: GINKGO
     Dosage: 120 MG, UNKNOWN
     Route: 065
  4. TRUXAL                             /00012102/ [Concomitant]
     Active Substance: CHLORPROTHIXENE
     Dosage: 15 MG, UNKNOWN
     Route: 065

REACTIONS (2)
  - Autoimmune disorder [Unknown]
  - Gastrointestinal inflammation [Unknown]

NARRATIVE: CASE EVENT DATE: 2016
